FAERS Safety Report 14488500 (Version 1)
Quarter: 2018Q1

REPORT INFORMATION
  Report Type: Spontaneous
  Country: US (occurrence: US)
  Receive Date: 20180205
  Receipt Date: 20180205
  Transmission Date: 20180509
  Serious: Yes (Other)
  Sender: FDA-Public Use
  Company Number: US-PFIZER INC-2018045517

PATIENT
  Age: 71 Year
  Sex: Female

DRUGS (1)
  1. PREMPRO [Suspect]
     Active Substance: ESTROGENS, CONJUGATED\MEDROXYPROGESTERONE ACETATE
     Indication: HORMONE REPLACEMENT THERAPY
     Dosage: [ESTROGEN CONJUGATED 0.625MG]/[MEDROXYPROGESTERONE ACETATE 2.5MG] .625/2.5MG TABLET, ONCE A DAY
     Route: 048
     Dates: start: 19970917

REACTIONS (2)
  - Haemorrhage [Unknown]
  - Suicidal ideation [Unknown]
